FAERS Safety Report 20923339 (Version 2)
Quarter: 2022Q2

REPORT INFORMATION
  Report Type: Spontaneous
  Country: US (occurrence: US)
  Receive Date: 20220607
  Receipt Date: 20220609
  Transmission Date: 20220721
  Serious: No
  Sender: FDA-Public Use
  Company Number: US-SPECGX-T202102578

PATIENT
  Sex: Female
  Weight: 60 kg

DRUGS (4)
  1. ACETAMINOPHEN\HYDROCODONE [Suspect]
     Active Substance: ACETAMINOPHEN\HYDROCODONE
     Indication: Pain
     Dosage: UNK, (USUALLY AS NEEDED BUT WHEN SHE TAKES IT EVERY 6 HOURS (3 IN A DAY))
     Route: 065
     Dates: start: 2021, end: 2021
  2. METHYLPHENIDATE HYDROCHLORIDE [Suspect]
     Active Substance: METHYLPHENIDATE HYDROCHLORIDE
     Indication: Somnolence
     Dosage: 10 MILLIGRAM, BID
     Route: 065
     Dates: start: 2021, end: 202111
  3. LAMICTAL [Concomitant]
     Active Substance: LAMOTRIGINE
     Indication: Mood swings
     Dosage: 150 MILLIGRAM, BID
     Route: 065
  4. CRESTOR [Concomitant]
     Active Substance: ROSUVASTATIN CALCIUM
     Indication: Blood cholesterol increased
     Dosage: 10 MILLIGRAM, QOD
     Route: 065

REACTIONS (4)
  - Feeling abnormal [Recovered/Resolved]
  - Malaise [Recovered/Resolved]
  - Ill-defined disorder [Recovered/Resolved]
  - Nausea [Recovered/Resolved]

NARRATIVE: CASE EVENT DATE: 20210101
